FAERS Safety Report 9500692 (Version 1)
Quarter: 2013Q3

REPORT INFORMATION
  Report Type: Spontaneous
  Country: GR (occurrence: GR)
  Receive Date: 20130905
  Receipt Date: 20130905
  Transmission Date: 20140515
  Serious: Yes (Other)
  Sender: FDA-Public Use
  Company Number: GR-PFIZER INC-2013253790

PATIENT
  Sex: Male

DRUGS (4)
  1. NEURONTIN [Suspect]
     Dosage: 300 MG, 3X/DAY
     Route: 048
     Dates: start: 2013
  2. RISPERDAL [Concomitant]
     Dosage: UNK
     Route: 048
  3. AKINETON [Concomitant]
     Dosage: UNK
     Route: 048
  4. LEXOTANIL [Concomitant]
     Dosage: UNK
     Route: 048

REACTIONS (2)
  - Paralysis [Unknown]
  - Head titubation [Not Recovered/Not Resolved]
